FAERS Safety Report 23268257 (Version 1)
Quarter: 2023Q4

REPORT INFORMATION
  Report Type: Spontaneous
  Country: US (occurrence: None)
  Receive Date: 20231206
  Receipt Date: 20231206
  Transmission Date: 20240109
  Serious: No
  Sender: FDA-Public Use
  Company Number: None

PATIENT
  Age: 73 Year
  Sex: Male
  Weight: 91 kg

DRUGS (1)
  1. ATORVASTATIN CALCIUM [Suspect]
     Active Substance: ATORVASTATIN CALCIUM
     Indication: Hyperlipidaemia
     Dosage: FREQUENCY : DAILY;?
     Route: 048
     Dates: start: 20170201, end: 20231108

REACTIONS (5)
  - Rhabdomyolysis [None]
  - Dialysis [None]
  - Anal incontinence [None]
  - Gait disturbance [None]
  - Acute kidney injury [None]

NARRATIVE: CASE EVENT DATE: 20231108
